FAERS Safety Report 24226351 (Version 1)
Quarter: 2024Q3

REPORT INFORMATION
  Report Type: Spontaneous
  Country: PT (occurrence: None)
  Receive Date: 20240820
  Receipt Date: 20240820
  Transmission Date: 20241017
  Serious: Yes (Life-Threatening, Hospitalization, Other)
  Sender: NORMON
  Company Number: PT-MLMSERVICE-20231215-4729239-1

PATIENT
  Age: 39 Year
  Sex: Female

DRUGS (18)
  1. LORAZEPAM [Suspect]
     Active Substance: LORAZEPAM
     Indication: Antipsychotic therapy
     Dosage: 2 ID
  2. RISPERIDONE [Suspect]
     Active Substance: RISPERIDONE
     Indication: Antipsychotic therapy
     Dosage: 3 ID
  3. BUDESONIDE [Concomitant]
     Active Substance: BUDESONIDE
     Dosage: 2 ID
  4. DIAZEPAM [Suspect]
     Active Substance: DIAZEPAM
     Dosage: ID
  5. ACETYLCYSTEINE [Concomitant]
     Active Substance: ACETYLCYSTEINE
     Dosage: ID
  6. SERTRALINE [Suspect]
     Active Substance: SERTRALINE HYDROCHLORIDE
     Indication: Antipsychotic therapy
     Dosage: ID
  7. BACLOFEN [Concomitant]
     Active Substance: BACLOFEN
     Dosage: 3 ID
  8. FERROUS SULFATE [Concomitant]
     Active Substance: FERROUS SULFATE
     Dosage: ID
  9. QUETIAPINE [Suspect]
     Active Substance: QUETIAPINE
     Indication: Antipsychotic therapy
     Dosage: ID
  10. FLUCONAZOLE [Suspect]
     Active Substance: FLUCONAZOLE
     Indication: Antifungal prophylaxis
  11. VANCOMYCIN [Suspect]
     Active Substance: VANCOMYCIN
     Indication: Antibiotic therapy
  12. LACTULOSE [Concomitant]
     Active Substance: LACTULOSE
     Dosage: ID
  13. ALBUTEROL\IPRATROPIUM [Concomitant]
     Active Substance: ALBUTEROL\IPRATROPIUM
     Dosage: ID
  14. AMOXICILLIN\CLAVULANIC ACID [Suspect]
     Active Substance: AMOXICILLIN\CLAVULANIC ACID
     Indication: Antibiotic therapy
  15. MEROPENEM [Suspect]
     Active Substance: MEROPENEM
     Indication: Antibiotic therapy
  16. HALOPERIDOL [Suspect]
     Active Substance: HALOPERIDOL
  17. VALPROIC ACID [Suspect]
     Active Substance: VALPROIC ACID
     Indication: Antipsychotic therapy
     Dosage: 3 ID
  18. FENTANYL [Concomitant]
     Active Substance: FENTANYL\FENTANYL CITRATE

REACTIONS (1)
  - Neuroleptic malignant syndrome [Recovered/Resolved]
